FAERS Safety Report 25161213 (Version 1)
Quarter: 2025Q2

REPORT INFORMATION
  Report Type: Spontaneous
  Country: US (occurrence: None)
  Receive Date: 20250403
  Receipt Date: 20250403
  Transmission Date: 20250717
  Serious: Yes (unspecified)
  Sender: FDA-CTU
  Company Number: None

PATIENT
  Age: 36 Year
  Sex: Female
  Weight: 69.75 kg

DRUGS (3)
  1. OZEMPIC [Suspect]
     Active Substance: SEMAGLUTIDE
     Indication: Weight decreased
     Route: 050
     Dates: start: 20240228, end: 20250331
  2. BIOTIN [Concomitant]
     Active Substance: BIOTIN
  3. VITAMINS [Concomitant]
     Active Substance: VITAMINS

REACTIONS (4)
  - Alopecia [None]
  - Alopecia [None]
  - Therapy cessation [None]
  - Weight increased [None]

NARRATIVE: CASE EVENT DATE: 20250301
